FAERS Safety Report 16727713 (Version 1)
Quarter: 2019Q3

REPORT INFORMATION
  Report Type: Spontaneous
  Country: US (occurrence: US)
  Receive Date: 20190822
  Receipt Date: 20190822
  Transmission Date: 20191005
  Serious: No
  Sender: FDA-Public Use
  Company Number: US-PAREXEL-2018US008987

PATIENT

DRUGS (1)
  1. ELIGARD [Suspect]
     Active Substance: LEUPROLIDE ACETATE
     Indication: PROSTATE CANCER
     Dosage: 45 MG,EVERY 6 MONTHS
     Route: 058
     Dates: start: 20180828

REACTIONS (3)
  - Wrong technique in product usage process [Unknown]
  - Injury associated with device [Unknown]
  - Product leakage [Unknown]

NARRATIVE: CASE EVENT DATE: 20180828
